FAERS Safety Report 8167491-4 (Version None)
Quarter: 2012Q1

REPORT INFORMATION
  Report Type: 
  Country: None (occurrence: None)
  Receive Date: 20120227
  Receipt Date: 20120216
  Transmission Date: 20120608
  Serious: Yes (Other)
  Sender: FDA-Public Use
  Company Number: CA-JNJFOC-20120209103

PATIENT
  Sex: Male
  Weight: 161.48 kg

DRUGS (3)
  1. IMURAN [Concomitant]
     Route: 048
  2. REMICADE [Suspect]
     Indication: COLITIS ULCERATIVE
     Route: 042
     Dates: start: 20090501
  3. EFFEXOR [Concomitant]
     Route: 048

REACTIONS (4)
  - PALPITATIONS [None]
  - PAIN IN EXTREMITY [None]
  - DYSPNOEA [None]
  - CHEST DISCOMFORT [None]
